FAERS Safety Report 11498276 (Version 2)
Quarter: 2015Q3

REPORT INFORMATION
  Report Type: Spontaneous
  Country: IT (occurrence: IT)
  Receive Date: 20150911
  Receipt Date: 20150911
  Transmission Date: 20151125
  Serious: Yes (Hospitalization)
  Sender: FDA-Public Use
  Company Number: IT-BAYER-2015-417507

PATIENT
  Age: 82 Year
  Sex: Male

DRUGS (4)
  1. INDERAL [Concomitant]
     Active Substance: PROPRANOLOL HYDROCHLORIDE
     Indication: ESSENTIAL TREMOR
     Route: 048
  2. ACETYLSALICYLIC ACID({=100 MG) [Suspect]
     Active Substance: ASPIRIN
     Indication: THROMBOSIS PROPHYLAXIS
     Dosage: DAILY DOSE 100 MG
     Route: 048
     Dates: start: 20150101, end: 20150815
  3. TRIATEC [Concomitant]
     Active Substance: RAMIPRIL
     Indication: HYPERTENSION
     Route: 048
  4. ZYLORIC [Concomitant]
     Active Substance: ALLOPURINOL
     Route: 048

REACTIONS (5)
  - Diarrhoea [Unknown]
  - Asthenia [Unknown]
  - Presyncope [Unknown]
  - Haemorrhagic anaemia [Unknown]
  - Gastrointestinal haemorrhage [Unknown]

NARRATIVE: CASE EVENT DATE: 20150815
